FAERS Safety Report 18073630 (Version 5)
Quarter: 2020Q4

REPORT INFORMATION
  Report Type: Report from Study
  Country: US (occurrence: US)
  Receive Date: 20200727
  Receipt Date: 20201230
  Transmission Date: 20210113
  Serious: No
  Sender: FDA-Public Use
  Company Number: NVSC2020US208695

PATIENT
  Sex: Female

DRUGS (4)
  1. KISQALI [Suspect]
     Active Substance: RIBOCICLIB
     Dosage: UNK
     Route: 048
  2. KISQALI [Suspect]
     Active Substance: RIBOCICLIB
     Dosage: UNK
     Route: 048
  3. KISQALI [Suspect]
     Active Substance: RIBOCICLIB
     Indication: PRODUCT USED FOR UNKNOWN INDICATION
     Dosage: UNK
     Route: 048
  4. KISQALI [Suspect]
     Active Substance: RIBOCICLIB
     Route: 048

REACTIONS (19)
  - Sneezing [Unknown]
  - Chest discomfort [Unknown]
  - Hypersensitivity [Unknown]
  - Cough [Unknown]
  - Lacrimation increased [Unknown]
  - Pollakiuria [Unknown]
  - Fluid overload [Unknown]
  - Pruritus [Unknown]
  - Lymphoedema [Unknown]
  - Photosensitivity reaction [Unknown]
  - Hyperhidrosis [Unknown]
  - Hot flush [Unknown]
  - Nausea [Unknown]
  - Nasopharyngitis [Unknown]
  - Oral herpes [Unknown]
  - Alopecia [Unknown]
  - Dyspepsia [Unknown]
  - Rhinorrhoea [Unknown]
  - Fatigue [Unknown]
